FAERS Safety Report 4725504-3 (Version None)
Quarter: 2005Q3

REPORT INFORMATION
  Report Type: 
  Country: None (occurrence: None)
  Receive Date: 20050727
  Receipt Date: 20050718
  Transmission Date: 20060218
  Serious: Yes (Other)
  Sender: FDA-Public Use
  Company Number: US-JNJFOC-20030703832

PATIENT
  Sex: Female
  Weight: 80.74 kg

DRUGS (8)
  1. REMICADE [Suspect]
     Indication: RHEUMATOID ARTHRITIS
     Route: 042
  2. METHOTREXATE [Concomitant]
  3. ATENOLOL [Concomitant]
  4. PRINIVIL [Concomitant]
  5. VICODIN [Concomitant]
  6. VICODIN [Concomitant]
     Indication: PAIN
  7. ALEVE [Concomitant]
  8. PREDNISONE [Concomitant]

REACTIONS (11)
  - BLOOD PRESSURE SYSTOLIC INCREASED [None]
  - CERVICOBRACHIAL SYNDROME [None]
  - CHAPPED LIPS [None]
  - DRY THROAT [None]
  - DYSPHAGIA [None]
  - HEADACHE [None]
  - JOINT SWELLING [None]
  - THERAPEUTIC RESPONSE DECREASED [None]
  - TONGUE DISORDER [None]
  - TONGUE PARALYSIS [None]
  - WRIST SURGERY [None]
